FAERS Safety Report 5195350-8 (Version None)
Quarter: 2006Q4

REPORT INFORMATION
  Report Type: 
  Country: None (occurrence: None)
  Receive Date: 20061229
  Receipt Date: 20061219
  Transmission Date: 20070319
  Serious: Yes (Death)
  Sender: FDA-Public Use
  Company Number: BR-PFIZER INC-2006155140

PATIENT
  Sex: Male
  Weight: 70 kg

DRUGS (1)
  1. VFEND [Suspect]
     Indication: FUNGAL INFECTION
     Route: 042

REACTIONS (1)
  - DEATH [None]
